FAERS Safety Report 9188665 (Version 1)
Quarter: 2013Q1

REPORT INFORMATION
  Report Type: Spontaneous
  Country: GB (occurrence: GB)
  Receive Date: 20130325
  Receipt Date: 20130325
  Transmission Date: 20140127
  Serious: Yes (Other)
  Sender: FDA-Public Use
  Company Number: PHHY2013GB025601

PATIENT
  Age: 23 Year
  Sex: Male
  Weight: 82.55 kg

DRUGS (8)
  1. MIRTAZAPINE [Suspect]
     Indication: DEPRESSION
     Dosage: 45 MG, UNK
     Route: 048
     Dates: start: 20101010
  2. DIAZEPAM [Concomitant]
  3. LANSOPRAZOLE [Concomitant]
  4. METOCLOPRAMIDE [Concomitant]
  5. PREGABALIN [Concomitant]
  6. CODEINE PHOSPHATE [Concomitant]
  7. FLUCLOXACILLIN [Concomitant]
  8. AMOXICILLIN [Concomitant]

REACTIONS (9)
  - Rapid eye movements sleep abnormal [Not Recovered/Not Resolved]
  - Circadian rhythm sleep disorder [Unknown]
  - Neuralgia [Unknown]
  - Dyskinesia [Unknown]
  - Muscle spasms [Unknown]
  - Parosmia [Unknown]
  - Sleep paralysis [Unknown]
  - Head discomfort [Unknown]
  - Hallucination [Unknown]
